FAERS Safety Report 20811737 (Version 1)
Quarter: 2022Q2

REPORT INFORMATION
  Report Type: Spontaneous
  Country: US (occurrence: US)
  Receive Date: 20220511
  Receipt Date: 20220511
  Transmission Date: 20220720
  Serious: Yes (Other)
  Sender: FDA-Public Use
  Company Number: US-JNJFOC-20220507643

PATIENT

DRUGS (1)
  1. TYLENOL [Suspect]
     Active Substance: ACETAMINOPHEN
     Indication: Pain management
     Dosage: 2 CAPLETS ONCE DAILY
     Route: 065

REACTIONS (2)
  - Intestinal haemorrhage [Unknown]
  - Abdominal discomfort [Unknown]
